FAERS Safety Report 12267728 (Version 1)
Quarter: 2016Q2

REPORT INFORMATION
  Report Type: Report from Study
  Country: AR (occurrence: AR)
  Receive Date: 20160414
  Receipt Date: 20160414
  Transmission Date: 20160815
  Serious: Yes (Death, Hospitalization)
  Sender: FDA-Public Use
  Company Number: AR-ABBVIE-16K-007-1604240-00

PATIENT
  Age: 68 Year
  Sex: Male

DRUGS (1)
  1. HUMIRA [Suspect]
     Active Substance: ADALIMUMAB
     Indication: PSORIATIC ARTHROPATHY
     Route: 058
     Dates: start: 20121001

REACTIONS (4)
  - Cardiac arrest [Fatal]
  - Pain [Fatal]
  - Infection [Fatal]
  - Skin ulcer [Fatal]

NARRATIVE: CASE EVENT DATE: 20160220
